FAERS Safety Report 8920466 (Version 1)
Quarter: 2012Q4

REPORT INFORMATION
  Report Type: 
  Country: US (occurrence: US)
  Receive Date: 20121122
  Receipt Date: 20121122
  Transmission Date: 20130627
  Serious: Yes (Other)
  Sender: FDA-Public Use
  Company Number: PHHY2012US105356

PATIENT
  Age: 76 Year
  Sex: Female

DRUGS (2)
  1. ACETYLSALICYLIC ACID [Suspect]
     Indication: ARTHRITIS
     Dosage: 2 DF, as needed
     Route: 048
     Dates: end: 1980
  2. ACETYLSALICYLIC ACID [Suspect]
     Indication: NEURALGIA

REACTIONS (4)
  - Myocardial infarction [Recovered/Resolved]
  - Asthma [Not Recovered/Not Resolved]
  - Hypersensitivity [Not Recovered/Not Resolved]
  - Arthritis [Not Recovered/Not Resolved]
